FAERS Safety Report 5162485-5 (Version None)
Quarter: 2006Q4

REPORT INFORMATION
  Report Type: 
  Country: None (occurrence: None)
  Receive Date: 20061129
  Receipt Date: 20061129
  Transmission Date: 20070319
  Serious: Yes (Life-Threatening)
  Sender: FDA-Public Use
  Company Number: None

PATIENT
  Age: 86 Year
  Sex: Male

DRUGS (6)
  1. DOFETILIDE 250MCG PFIZER [Suspect]
     Indication: ATRIAL FIBRILLATION
     Dosage: 250MCG BID PO
     Route: 048
     Dates: start: 20060724, end: 20060725
  2. LEVOTHYROXINE SODIUM [Concomitant]
  3. RAMIPRIL [Concomitant]
  4. METOPROLOL XL [Concomitant]
  5. WARFARIN SODIUM [Concomitant]
  6. FUROSEMIDE [Concomitant]

REACTIONS (2)
  - TORSADE DE POINTES [None]
  - VENTRICULAR TACHYCARDIA [None]
